FAERS Safety Report 21555650 (Version 1)
Quarter: 2022Q4

REPORT INFORMATION
  Report Type: Spontaneous
  Country: US (occurrence: None)
  Receive Date: 20221103
  Receipt Date: 20221103
  Transmission Date: 20230112
  Serious: No
  Sender: FDA-Public Use
  Company Number: None

PATIENT
  Age: 9 Year
  Sex: Female
  Weight: 36.1 kg

DRUGS (5)
  1. MESALAMINE [Suspect]
     Active Substance: MESALAMINE
     Indication: Colitis ulcerative
     Dosage: FREQUENCY : TWICE A DAY;?
     Route: 048
     Dates: start: 20220525, end: 20220607
  2. ALBUTEROL SULFATE [Concomitant]
     Active Substance: ALBUTEROL SULFATE
  3. Atropine 0.01% drops [Concomitant]
  4. Metamethasone 0.05% ointment [Concomitant]
  5. Hydroxyzine 10mg/5mL syrup [Concomitant]

REACTIONS (2)
  - Product substitution issue [None]
  - Fixed eruption [None]

NARRATIVE: CASE EVENT DATE: 20220606
